FAERS Safety Report 7057155-2 (Version None)
Quarter: 2010Q4

REPORT INFORMATION
  Report Type: 
  Country: None (occurrence: None)
  Receive Date: 20101022
  Receipt Date: 20101018
  Transmission Date: 20110411
  Serious: Yes (Death, Other)
  Sender: FDA-Public Use
  Company Number: PHFR2010GB04819

PATIENT
  Age: 29 Year
  Sex: Male

DRUGS (3)
  1. CLOZAPINE [Suspect]
     Indication: SCHIZOPHRENIA
     Dosage: 800 MG, QD
     Route: 048
     Dates: start: 20070619
  2. DULOXETINE [Suspect]
     Indication: DEPRESSIVE SYMPTOM
     Dosage: 60 MG, UNK
     Route: 048
     Dates: start: 20080723
  3. NALTREXONE HYDROCHLORIDE [Concomitant]

REACTIONS (2)
  - ANTIPSYCHOTIC DRUG LEVEL INCREASED [None]
  - CARDIAC ARREST [None]
